FAERS Safety Report 8691234 (Version 3)
Quarter: 2012Q4

REPORT INFORMATION
  Report Type: 
  Country: GB (occurrence: GB)
  Receive Date: 20120730
  Receipt Date: 20121022
  Transmission Date: 20130627
  Serious: Yes (Other)
  Sender: FDA-Public Use
  Company Number: PHFR2012GB004196

PATIENT
  Sex: Female

DRUGS (6)
  1. GLIVEC [Suspect]
     Indication: GASTROINTESTINAL STROMAL TUMOUR
     Dosage: 400 mg, UNK
     Route: 048
     Dates: start: 201009
  2. ASPIRIN [Concomitant]
     Indication: CEREBROVASCULAR ACCIDENT
     Dosage: 75 mg, UNK
     Route: 048
  3. DIPYRIDAMOLE [Concomitant]
     Indication: CEREBROVASCULAR ACCIDENT
     Dosage: 200 mg, UNK
     Route: 048
  4. SIMVASTATIN [Concomitant]
     Indication: HYPERCHOLESTEROLAEMIA
     Dosage: 20 mg, UNK
  5. MESALAZINE [Concomitant]
     Indication: GASTROINTESTINAL HAEMORRHAGE
     Route: 048
  6. BISOPROLOL [Concomitant]
     Indication: HYPERTENSION
     Dosage: 1.25 mg, UNK
     Route: 048

REACTIONS (2)
  - Lung adenocarcinoma [Recovering/Resolving]
  - Second primary malignancy [Unknown]
